FAERS Safety Report 9465857 (Version 1)
Quarter: 2013Q3

REPORT INFORMATION
  Report Type: Report from Study
  Country: US (occurrence: US)
  Receive Date: 20130820
  Receipt Date: 20130820
  Transmission Date: 20140515
  Serious: Yes (Hospitalization)
  Sender: FDA-Public Use
  Company Number: US-SANOFI-AVENTIS-2013SA082783

PATIENT
  Age: 70 Year
  Sex: 0

DRUGS (1)
  1. RIFAPENTINE [Suspect]
     Indication: LATENT TUBERCULOSIS
     Route: 065

REACTIONS (5)
  - Pneumonia pseudomonal [Unknown]
  - Fatigue [Unknown]
  - Decreased appetite [Unknown]
  - Nausea [Unknown]
  - Dyspnoea [Unknown]
